FAERS Safety Report 6084700-6 (Version None)
Quarter: 2009Q1

REPORT INFORMATION
  Report Type: 
  Country: None (occurrence: None)
  Receive Date: 20090217
  Receipt Date: 20090204
  Transmission Date: 20090719
  Serious: Yes (Hospitalization)
  Sender: FDA-Public Use
  Company Number: 1000003915

PATIENT
  Age: 41 Year
  Sex: Female

DRUGS (4)
  1. ESCITALOPRAM [Suspect]
     Indication: DEPRESSION
     Dosage: 1 DOSAGE FORMS (1 DOSAGE FORMS, 1 IN 1 D) ,ORAL
     Route: 048
     Dates: start: 20081119, end: 20081124
  2. TERCIAN [Suspect]
     Dosage: 75 MG (25 MG, 3 IN 1 D), ORAL
     Route: 048
     Dates: start: 20081119, end: 20081124
  3. AKINETON [Suspect]
     Dosage: 1 DOSAGE FORMS (1 DOSAGE FORMS, 1 IN 1 D) ,ORAL
     Route: 048
     Dates: start: 20081119
  4. TRANSIPEG [Concomitant]

REACTIONS (13)
  - APLASIA [None]
  - AZOTAEMIA [None]
  - BACK PAIN [None]
  - BONE MARROW FAILURE [None]
  - BONE MARROW TOXICITY [None]
  - BRONCHOALVEOLAR LAVAGE ABNORMAL [None]
  - INFLUENZA [None]
  - LUNG DISORDER [None]
  - METABOLIC ACIDOSIS [None]
  - PAIN [None]
  - RALES [None]
  - RENAL FAILURE [None]
  - STAPHYLOCOCCAL INFECTION [None]
